FAERS Safety Report 24267491 (Version 1)
Quarter: 2024Q3

REPORT INFORMATION
  Report Type: Spontaneous
  Country: US (occurrence: None)
  Receive Date: 20240829
  Receipt Date: 20240829
  Transmission Date: 20241017
  Serious: No
  Sender: Public
  Company Number: None

PATIENT
  Age: 44 Year
  Sex: Female
  Weight: 85.5 kg

DRUGS (14)
  1. REXULTI [Suspect]
     Active Substance: BREXPIPRAZOLE
     Indication: Depression
     Dosage: OTHER QUANTITY : 1 TABLET(S);?FREQUENCY : DAILY;?
     Route: 048
     Dates: start: 20231216
  2. LEVOTHYROXINE [Concomitant]
     Active Substance: LEVOTHYROXINE\LEVOTHYROXINE SODIUM
  3. atrovastation [Concomitant]
  4. DOXEPIN [Concomitant]
     Active Substance: DOXEPIN
  5. cryselle (birth control [Concomitant]
  6. VITAMIN C [Concomitant]
     Active Substance: ASCORBIC ACID
  7. D [Concomitant]
  8. BIOTIN [Concomitant]
     Active Substance: BIOTIN
  9. OMEGA 3 [Concomitant]
     Active Substance: CAPSAICIN
  10. ZINC [Concomitant]
     Active Substance: ZINC
  11. PROBIOTICS NOS [Concomitant]
     Active Substance: PROBIOTICS NOS
  12. IRON [Concomitant]
     Active Substance: IRON
  13. MAGNESIUM [Concomitant]
     Active Substance: MAGNESIUM
  14. perfect balance complex for women [Concomitant]

REACTIONS (1)
  - Gambling [None]

NARRATIVE: CASE EVENT DATE: 20240101
